FAERS Safety Report 7865691-1 (Version None)
Quarter: 2011Q4

REPORT INFORMATION
  Report Type: 
  Country: None (occurrence: None)
  Receive Date: 20111028
  Receipt Date: 20110208
  Transmission Date: 20120403
  Serious: No
  Sender: FDA-Public Use
  Company Number: US-GLAXOSMITHKLINE-A0912495A

PATIENT
  Age: 72 Year
  Sex: Male

DRUGS (3)
  1. ADVAIR DISKUS 100/50 [Suspect]
     Indication: BRONCHITIS
     Dosage: 1PUFF TWICE PER DAY
     Route: 055
     Dates: start: 20110131, end: 20110207
  2. MULTIPLE MEDICATIONS [Concomitant]
  3. ANTIBIOTIC [Concomitant]

REACTIONS (10)
  - SENSORY DISTURBANCE [None]
  - WHEEZING [None]
  - POOR QUALITY SLEEP [None]
  - BLOOD PRESSURE INCREASED [None]
  - HEART RATE IRREGULAR [None]
  - TREMOR [None]
  - FEELING ABNORMAL [None]
  - PALPITATIONS [None]
  - ASTHENIA [None]
  - NERVOUSNESS [None]
